FAERS Safety Report 5823033-7 (Version None)
Quarter: 2008Q3

REPORT INFORMATION
  Report Type: 
  Country: None (occurrence: None)
  Receive Date: 20080725
  Receipt Date: 20080714
  Transmission Date: 20090109
  Serious: Yes (Hospitalization)
  Sender: FDA-Public Use
  Company Number: AT-ROCHE-576227

PATIENT
  Age: 79 Year
  Sex: Female
  Weight: 65 kg

DRUGS (22)
  1. BONIVA [Suspect]
     Indication: OSTEOPOROSIS
     Dosage: STRENGTH: 3 MG/3ML
     Route: 042
     Dates: start: 20080524
  2. BONIVA [Concomitant]
     Route: 048
  3. ACEMIN [Concomitant]
  4. AGAFFIN [Concomitant]
  5. CAL-D-VITA [Concomitant]
  6. DIGIMERCK [Concomitant]
  7. DULCOLAX [Concomitant]
  8. EBETREXAT [Concomitant]
  9. FOLSAN [Concomitant]
  10. SPIRONOLACTONE [Concomitant]
  11. HALCION [Concomitant]
  12. HYDAL [Concomitant]
  13. INOTYOL [Concomitant]
  14. MIRTABENE [Concomitant]
  15. NOVALGIN [Concomitant]
     Indication: PAIN
     Dosage: TAKEN WHEN PAIN OCCURS
  16. OCULOTECT [Concomitant]
     Dosage: DRUG: OCULOTECT EYE DROPS
     Route: 065
  17. PANTOPRAZOLE SODIUM [Concomitant]
  18. SAB SIMPLEX [Concomitant]
  19. TRANSTEC [Concomitant]
     Dosage: DOSING FREQUENCY: PER HOUR
     Route: 062
  20. URBASON [Concomitant]
     Dosage: STRENGTH: 4 MG
  21. URBASON [Concomitant]
     Dosage: STRENGTH: 40 MG
  22. XANOR [Concomitant]

REACTIONS (2)
  - RAYNAUD'S PHENOMENON [None]
  - VASCULAR OCCLUSION [None]
